FAERS Safety Report 4949326-3 (Version None)
Quarter: 2006Q1

REPORT INFORMATION
  Report Type: 
  Country: None (occurrence: None)
  Receive Date: 20060315
  Receipt Date: 20060308
  Transmission Date: 20060701
  Serious: Yes (Other)
  Sender: FDA-Public Use
  Company Number: HQWYE462815JUN04

PATIENT
  Age: 75 Year
  Sex: Male
  Weight: 81 kg

DRUGS (1)
  1. MYLOTARG [Suspect]
     Indication: ACUTE MYELOID LEUKAEMIA
     Dosage: 18 MG EVERY 2 WEEKS (TIMES 2 DOSES), INTRAVENOUS
     Route: 042
     Dates: start: 20040524

REACTIONS (3)
  - BRADYCARDIA [None]
  - HYPOTENSION [None]
  - INFUSION RELATED REACTION [None]
